FAERS Safety Report 10484158 (Version 1)
Quarter: 2014Q3

REPORT INFORMATION
  Report Type: Spontaneous
  Country: US (occurrence: None)
  Receive Date: 20140929
  Receipt Date: 20140929
  Transmission Date: 20150326
  Serious: No
  Sender: FDA-Public Use
  Company Number: None

PATIENT
  Age: 62 Year
  Sex: Male
  Weight: 94.35 kg

DRUGS (1)
  1. CEFUROXIME. [Suspect]
     Active Substance: CEFUROXIME
     Indication: BACTERIAL INFECTION
     Dosage: 14
     Route: 048

REACTIONS (7)
  - Asthenia [None]
  - Overdose [None]
  - Memory impairment [None]
  - Poor quality sleep [None]
  - Fatigue [None]
  - Dyspnoea [None]
  - Pain [None]

NARRATIVE: CASE EVENT DATE: 20140903
